FAERS Safety Report 5330364-6 (Version None)
Quarter: 2007Q2

REPORT INFORMATION
  Report Type: 
  Country: None (occurrence: None)
  Receive Date: 20070521
  Receipt Date: 20070509
  Transmission Date: 20071010
  Serious: Yes (Other)
  Sender: FDA-Public Use
  Company Number: US-PFIZER INC-2007002240

PATIENT
  Sex: Female
  Weight: 109 kg

DRUGS (4)
  1. DEPO-SUBQ PROVERA 104 [Suspect]
     Indication: ENDOMETRIOSIS
     Route: 058
     Dates: start: 20051227, end: 20051227
  2. DEPO-SUBQ PROVERA 104 [Suspect]
     Route: 058
     Dates: start: 20070101, end: 20070101
  3. ELAVIL [Concomitant]
     Indication: FIBROMYALGIA
  4. NEURONTIN [Concomitant]
     Indication: FIBROMYALGIA

REACTIONS (3)
  - INCORRECT DOSE ADMINISTERED [None]
  - MIGRAINE [None]
  - PELVIC PAIN [None]
